FAERS Safety Report 7562638-2 (Version None)
Quarter: 2011Q2

REPORT INFORMATION
  Report Type: 
  Country: None (occurrence: None)
  Receive Date: 20110622
  Receipt Date: 20110614
  Transmission Date: 20111010
  Serious: No
  Sender: FDA-Public Use
  Company Number: US-JNJFOC-20110607393

PATIENT
  Sex: Male
  Weight: 99.79 kg

DRUGS (12)
  1. TRAZODONE HCL [Concomitant]
     Indication: SLEEP DISORDER THERAPY
     Route: 048
  2. PHENERGAN HCL [Concomitant]
     Route: 048
  3. CIALIS [Concomitant]
     Indication: BLOOD TESTOSTERONE
     Route: 048
  4. SOMA [Concomitant]
     Route: 065
  5. NEURONTIN [Concomitant]
     Indication: SCIATICA
     Route: 048
  6. DURAGESIC-100 [Suspect]
     Indication: BACK PAIN
     Route: 065
     Dates: start: 20000101
  7. VALIUM [Concomitant]
     Indication: SLEEP DISORDER THERAPY
     Route: 048
  8. DILAUDID [Concomitant]
     Indication: PAIN
     Route: 048
  9. NORCO [Concomitant]
     Indication: PAIN
  10. PRILOSEC [Concomitant]
     Indication: GASTROOESOPHAGEAL REFLUX DISEASE
     Route: 048
  11. IMITREX [Concomitant]
     Route: 048
  12. CELEBREX [Concomitant]
     Indication: PAIN
     Route: 065

REACTIONS (4)
  - WRONG TECHNIQUE IN DRUG USAGE PROCESS [None]
  - CHILLS [None]
  - HYPERHIDROSIS [None]
  - DRUG ADMINISTERED AT INAPPROPRIATE SITE [None]
